FAERS Safety Report 11410735 (Version 1)
Quarter: 2015Q3

REPORT INFORMATION
  Report Type: Spontaneous
  Country: US (occurrence: None)
  Receive Date: 20150820
  Receipt Date: 20150820
  Transmission Date: 20151125
  Serious: No
  Sender: FDA-Public Use
  Company Number: None

PATIENT
  Age: 53 Year
  Sex: Female

DRUGS (1)
  1. HUMIRA [Suspect]
     Active Substance: ADALIMUMAB
     Indication: COLITIS ULCERATIVE
     Dosage: 40 MG, EVERY 14 DAYS
     Route: 058
     Dates: start: 20140319

REACTIONS (2)
  - Arthralgia [None]
  - Lethargy [None]

NARRATIVE: CASE EVENT DATE: 20150818
